FAERS Safety Report 6150033-2 (Version None)
Quarter: 2009Q2

REPORT INFORMATION
  Report Type: 
  Country: None (occurrence: None)
  Receive Date: 20090409
  Receipt Date: 20090403
  Transmission Date: 20091009
  Serious: Yes (Death)
  Sender: FDA-Public Use
  Company Number: B0569230A

PATIENT
  Age: 46 Year
  Sex: Male

DRUGS (5)
  1. WELLBUTRIN SR [Suspect]
  2. DOXEPIN HCL [Suspect]
  3. METHAMPHETAMINE HYDROCHLORIDE [Suspect]
  4. ZYPREXA [Suspect]
  5. BUSPAR [Concomitant]

REACTIONS (3)
  - COMPLETED SUICIDE [None]
  - DEPRESSED LEVEL OF CONSCIOUSNESS [None]
  - DRUG TOXICITY [None]
